FAERS Safety Report 7374696-9 (Version None)
Quarter: 2011Q1

REPORT INFORMATION
  Report Type: 
  Country: None (occurrence: None)
  Receive Date: 20110325
  Receipt Date: 20100915
  Transmission Date: 20110831
  Serious: No
  Sender: FDA-Public Use
  Company Number: US-MYLANLABS-2010S1014311

PATIENT
  Age: 60 Year
  Sex: Female
  Weight: 86.18 kg

DRUGS (7)
  1. ATENOLOL [Concomitant]
     Indication: HYPERTENSION
     Dates: start: 20000101
  2. HYDROCHLOROTHIAZIDE [Concomitant]
     Indication: OEDEMA
     Dates: start: 20030101
  3. FENTANYL-100 [Suspect]
     Indication: PAIN
     Dosage: CHANGED Q. 48 HOURS.
     Route: 062
     Dates: start: 20060101, end: 20100601
  4. ATIVAN [Concomitant]
     Indication: ANXIETY
  5. ZOCOR [Concomitant]
     Indication: BLOOD CHOLESTEROL INCREASED
     Dates: start: 20090101
  6. DILAUDID [Concomitant]
     Dosage: PRN
     Dates: start: 20100401
  7. SYNTHROID [Concomitant]
     Indication: HYPOTHYROIDISM
     Dates: start: 20030101

REACTIONS (4)
  - APPLICATION SITE IRRITATION [None]
  - SKIN DISCOLOURATION [None]
  - APPLICATION SITE VESICLES [None]
  - APPLICATION SITE PRURITUS [None]
